FAERS Safety Report 23188419 (Version 3)
Quarter: 2024Q1

REPORT INFORMATION
  Report Type: Spontaneous
  Country: CA (occurrence: CA)
  Receive Date: 20231115
  Receipt Date: 20240109
  Transmission Date: 20240410
  Serious: Yes (Other)
  Sender: FDA-Public Use
  Company Number: CA-PFIZER INC-202300201038

PATIENT
  Age: 29 Year
  Sex: Male

DRUGS (1)
  1. ABRILADA [Suspect]
     Active Substance: ADALIMUMAB-AFZB
     Indication: Crohn^s disease
     Dosage: WEEK 0 160 MG, WEEK 2 80 MG AND THEN 40 MG EVERY OTHER WEEK (PREFILLED SYRINGE)
     Route: 058
     Dates: start: 20230222

REACTIONS (4)
  - Ileal ulcer [Not Recovered/Not Resolved]
  - Therapeutic response shortened [Unknown]
  - Gastrointestinal mucosa hyperaemia [Unknown]
  - Off label use [Unknown]

NARRATIVE: CASE EVENT DATE: 20230101
